FAERS Safety Report 4864718-9 (Version None)
Quarter: 2005Q4

REPORT INFORMATION
  Report Type: 
  Country: None (occurrence: None)
  Receive Date: 20051222
  Receipt Date: 20050218
  Transmission Date: 20060501
  Serious: Yes (Hospitalization)
  Sender: FDA-Public Use
  Company Number: US-MERCK-0502USA02409

PATIENT
  Age: 73 Year
  Sex: Female
  Weight: 51 kg

DRUGS (14)
  1. VIOXX [Suspect]
     Indication: ARTHRALGIA
     Route: 048
     Dates: start: 20020401, end: 20021101
  2. VIOXX [Suspect]
     Indication: RHEUMATOID ARTHRITIS
     Route: 048
     Dates: start: 20020401, end: 20021101
  3. [THERAPY UNSPECIFIED] [Concomitant]
     Route: 065
  4. NITROGLYCERIN [Concomitant]
     Indication: CARDIAC DISORDER
     Route: 065
     Dates: start: 19970101, end: 20021101
  5. OGEN [Concomitant]
     Indication: HORMONE REPLACEMENT THERAPY
     Route: 065
  6. ALLEGRA [Concomitant]
     Indication: HYPERSENSITIVITY
     Route: 065
  7. GLUCOPHAGE [Concomitant]
     Indication: DIABETES MELLITUS
     Route: 065
  8. CAPTOPRIL [Concomitant]
     Indication: HYPERTENSION
     Route: 065
     Dates: start: 20000101
  9. LASIX [Concomitant]
     Indication: HYPERTENSION
     Route: 065
     Dates: start: 20000101
  10. AMITRIPTYLINE HYDROCHLORIDE [Concomitant]
     Indication: ANXIETY
     Route: 065
  11. ASPIRIN [Concomitant]
     Indication: CARDIAC DISORDER
     Route: 065
     Dates: start: 19990101
  12. ZOCOR [Concomitant]
     Indication: BLOOD CHOLESTEROL INCREASED
     Route: 048
     Dates: start: 19980101
  13. NAPROXEN [Concomitant]
     Indication: PAIN
     Route: 065
     Dates: start: 19970101
  14. METOPROLOL [Concomitant]
     Indication: HYPERTENSION
     Route: 065
     Dates: start: 20000101

REACTIONS (5)
  - ADVERSE EVENT [None]
  - CARDIAC DISORDER [None]
  - CARDIAC FAILURE CONGESTIVE [None]
  - EATING DISORDER [None]
  - MYOCARDIAL INFARCTION [None]
